FAERS Safety Report 11999559 (Version 2)
Quarter: 2016Q1

REPORT INFORMATION
  Report Type: Spontaneous
  Country: FI (occurrence: FI)
  Receive Date: 20160204
  Receipt Date: 20160222
  Transmission Date: 20160526
  Serious: Yes (Other)
  Sender: FDA-Public Use
  Company Number: FI-ROCHE-1704826

PATIENT
  Age: 61 Year
  Sex: Male

DRUGS (3)
  1. TAXOTERE [Concomitant]
     Active Substance: DOCETAXEL
     Indication: NON-SMALL CELL LUNG CANCER METASTATIC
     Dosage: 6 CYCLES
     Route: 065
     Dates: start: 201311, end: 201402
  2. AVASTIN [Suspect]
     Active Substance: BEVACIZUMAB
     Indication: NON-SMALL CELL LUNG CANCER METASTATIC
     Dosage: 30 CYCLE
     Route: 065
     Dates: start: 201311, end: 201601
  3. TAXOTERE [Concomitant]
     Active Substance: DOCETAXEL
     Dosage: 6 CYCLES
     Route: 065
     Dates: start: 201310, end: 201402

REACTIONS (6)
  - Haemangioma [Unknown]
  - Eyelid ptosis [Unknown]
  - Malignant neoplasm progression [Unknown]
  - Cerebral microangiopathy [Unknown]
  - Dysphagia [Unknown]
  - Malnutrition [Unknown]

NARRATIVE: CASE EVENT DATE: 2015
